FAERS Safety Report 8819260 (Version 1)
Quarter: 2012Q4

REPORT INFORMATION
  Report Type: Spontaneous
  Country: IL (occurrence: None)
  Receive Date: 20121004
  Receipt Date: 20121004
  Transmission Date: 20130627
  Serious: Yes (Other)
  Sender: FDA-Public Use
  Company Number: None

PATIENT
  Age: 51 Year
  Sex: Male
  Weight: 92 kg

DRUGS (1)
  1. CAMPHOR (NATURAL)\CAPSICUM\MENTHOL [Suspect]
     Indication: WOUND DRESSING
     Dates: start: 20120917, end: 20120918

REACTIONS (6)
  - Application site warmth [None]
  - Application site pain [None]
  - Application site erythema [None]
  - Application site pruritus [None]
  - Application site inflammation [None]
  - Urticaria [None]
